FAERS Safety Report 8993172 (Version 2)
Quarter: 2013Q2

REPORT INFORMATION
  Report Type: Spontaneous
  Country: IT (occurrence: IT)
  Receive Date: 20130102
  Receipt Date: 20130423
  Transmission Date: 20140414
  Serious: Yes (Other)
  Sender: FDA-Public Use
  Company Number: IT-ROCHE-1176023

PATIENT
  Age: 54 Year
  Sex: Male

DRUGS (9)
  1. AVASTIN [Suspect]
     Indication: COLON CANCER
     Route: 042
     Dates: start: 20121206, end: 20121206
  2. FLUOROURACILE TEVA [Suspect]
     Indication: COLON CANCER
     Route: 042
     Dates: start: 20121207, end: 20121208
  3. FLUOROURACILE TEVA [Suspect]
     Route: 042
     Dates: start: 20121206, end: 20121206
  4. CAMPTO [Suspect]
     Indication: COLON CANCER
     Route: 042
     Dates: start: 20121206, end: 20121206
  5. ONDANSETRON [Concomitant]
     Indication: COLON CANCER
     Route: 042
     Dates: start: 20121206, end: 20121206
  6. FELODAY [Concomitant]
     Route: 048
  7. PRITOR [Concomitant]
     Indication: HYPERTENSION
     Route: 048
  8. SOLDESAM [Concomitant]
     Indication: COLON CANCER
     Route: 042
     Dates: start: 20120206, end: 20120206
  9. RANIDIL [Concomitant]
     Indication: COLON CANCER
     Route: 042
     Dates: start: 20120206, end: 20120206

REACTIONS (5)
  - Diarrhoea [Recovering/Resolving]
  - Hypotension [Recovering/Resolving]
  - Lacrimation increased [Recovering/Resolving]
  - Salivary hypersecretion [Recovering/Resolving]
  - Eye oedema [Recovering/Resolving]
